FAERS Safety Report 8503092-3 (Version None)
Quarter: 2012Q3

REPORT INFORMATION
  Report Type: 
  Country: None (occurrence: None)
  Receive Date: 20120711
  Receipt Date: 20120701
  Transmission Date: 20120928
  Serious: Yes (Other)
  Sender: FDA-Public Use
  Company Number: IL-ELI_LILLY_AND_COMPANY-IL201207001227

PATIENT
  Sex: Female
  Weight: 65 kg

DRUGS (5)
  1. NOVITROPAN [Concomitant]
  2. MACRODANTIN [Concomitant]
  3. LAMICTAL [Concomitant]
  4. BACLOSAL [Concomitant]
  5. FORTEO [Suspect]
     Indication: OSTEOPOROSIS
     Dosage: 20 UG, QD
     Route: 058
     Dates: start: 20120624, end: 20120629

REACTIONS (9)
  - CONVULSION [None]
  - DIARRHOEA [None]
  - BLOOD PRESSURE INCREASED [None]
  - ABDOMINAL PAIN [None]
  - PYREXIA [None]
  - ASTHENIA [None]
  - VOMITING [None]
  - DIZZINESS [None]
  - FEELING ABNORMAL [None]
